FAERS Safety Report 4597066-5 (Version None)
Quarter: 2005Q1

REPORT INFORMATION
  Report Type: 
  Country: None (occurrence: None)
  Receive Date: 20050301
  Receipt Date: 20050214
  Transmission Date: 20050727
  Serious: Yes (Hospitalization)
  Sender: FDA-Public Use
  Company Number: A06200500049

PATIENT
  Sex: Female

DRUGS (1)
  1. STILNOX - (ZOLPIDEM) - TABLET - 10 MG [Suspect]
     Indication: INTENTIONAL MISUSE
     Dosage: UP TO 60 TABLET/DAY ORAL
     Route: 048

REACTIONS (3)
  - DRUG ABUSER [None]
  - INTENTIONAL MISUSE [None]
  - PSYCHOTIC DISORDER [None]
